FAERS Safety Report 21964729 (Version 1)
Quarter: 2023Q1

REPORT INFORMATION
  Report Type: Spontaneous
  Country: DE (occurrence: DE)
  Receive Date: 20230207
  Receipt Date: 20230207
  Transmission Date: 20230418
  Serious: Yes (Congenital Anomaly, Other)
  Sender: FDA-Public Use
  Company Number: DE-EMBRYOTOX-202206344

PATIENT
  Sex: Male

DRUGS (6)
  1. VENLAFAXINE HYDROCHLORIDE [Suspect]
     Active Substance: VENLAFAXINE HYDROCHLORIDE
     Indication: Depression
     Dosage: 150 MILLIGRAM DAILY;   PROLONGED-RELEASE VENLAFAXINE, 0. - 40.6. GESTATIONAL WEEK
     Route: 065
     Dates: start: 20210918, end: 20220701
  2. PROMETHAZINE [Suspect]
     Active Substance: PROMETHAZINE HYDROCHLORIDE
     Indication: Sleep disorder
     Dosage: 10 MILLIGRAM DAILY; 0. - 40. GESTATIONAL WEEK
     Route: 065
  3. REPEVAX [Concomitant]
     Active Substance: DIPHTHERIA AND TETANUS TOXOIDS AND ACELLULAR PERTUSSIS ADSORBED AND INACTIVATED POLIOVIRUS VACCINE
     Indication: Immunisation
     Dosage: 33.5. - 33.5. GESTATIONAL WEEK
     Dates: start: 20220512, end: 20220512
  4. INFLUVAC TETRA [Concomitant]
     Active Substance: INFLUENZA VIRUS VACCINE QUADRIVALENT TYPE A+B
     Indication: Immunisation
     Dosage: 16.4. - 16.4. GESTATIONAL WEEK
     Dates: start: 20220112, end: 20220112
  5. DINOPROSTONE [Concomitant]
     Active Substance: DINOPROSTONE
     Indication: Labour induction
     Dosage: 40.6. - 40.6. GESTATIONAL WEEK
     Route: 065
  6. Comirnaty monovalent (BioNTech/Pfizer) [Concomitant]
     Indication: COVID-19 immunisation
     Dosage: 14.6. - 14.6. GESTATIONAL WEEK
     Dates: start: 20211231, end: 20211231

REACTIONS (3)
  - Congenital aortic valve stenosis [Unknown]
  - Ebstein^s anomaly [Unknown]
  - Foetal exposure during pregnancy [Unknown]

NARRATIVE: CASE EVENT DATE: 20210918
